FAERS Safety Report 25255628 (Version 1)
Quarter: 2025Q2

REPORT INFORMATION
  Report Type: Spontaneous
  Country: TR (occurrence: TR)
  Receive Date: 20250430
  Receipt Date: 20250430
  Transmission Date: 20250716
  Serious: Yes (Other)
  Sender: GLAND PHARMA LTD
  Company Number: TR-GLANDPHARMA-TR-2025GLNLIT01123

PATIENT
  Age: 45 Year
  Sex: Male

DRUGS (13)
  1. CYTARABINE [Suspect]
     Active Substance: CYTARABINE
     Indication: High-grade B-cell lymphoma
     Route: 037
  2. DEXAMETHASONE SODIUM PHOSPHATE [Suspect]
     Active Substance: DEXAMETHASONE SODIUM PHOSPHATE
     Indication: High-grade B-cell lymphoma
     Route: 042
  3. DOXORUBICIN [Suspect]
     Active Substance: DOXORUBICIN
     Indication: High-grade B-cell lymphoma
     Route: 042
  4. IBRUTINIB [Suspect]
     Active Substance: IBRUTINIB
     Indication: High-grade B-cell lymphoma
     Route: 065
  5. IBRUTINIB [Suspect]
     Active Substance: IBRUTINIB
     Route: 048
  6. RITUXIMAB [Suspect]
     Active Substance: RITUXIMAB
     Indication: High-grade B-cell lymphoma
     Route: 042
  7. TEMOZOLOMIDE [Suspect]
     Active Substance: TEMOZOLOMIDE
     Indication: High-grade B-cell lymphoma
     Route: 048
  8. ETOPOSIDE [Suspect]
     Active Substance: ETOPOSIDE
     Indication: High-grade B-cell lymphoma
     Route: 042
  9. POSACONAZOLE [Concomitant]
     Active Substance: POSACONAZOLE
     Route: 065
  10. THIOTEPA [Concomitant]
     Active Substance: THIOTEPA
     Route: 065
  11. BUSULFAN [Concomitant]
     Active Substance: BUSULFAN
     Route: 065
  12. CYCLOPHOSPHAMIDE [Concomitant]
     Active Substance: CYCLOPHOSPHAMIDE
     Route: 065
  13. PLERIXAFOR [Concomitant]
     Active Substance: PLERIXAFOR
     Route: 065

REACTIONS (2)
  - Febrile neutropenia [Recovered/Resolved]
  - Product use in unapproved indication [Unknown]
